FAERS Safety Report 5473851-2 (Version None)
Quarter: 2007Q4

REPORT INFORMATION
  Report Type: 
  Country: None (occurrence: None)
  Receive Date: 20071001
  Receipt Date: 20070919
  Transmission Date: 20080405
  Serious: Yes (Other)
  Sender: FDA-Public Use
  Company Number: JP-PFIZER INC-2007078951

PATIENT
  Age: 59 Year
  Sex: Female

DRUGS (2)
  1. ALDACTONE [Suspect]
     Indication: CARDIAC FAILURE
     Route: 048
  2. FUROSEMIDE [Suspect]

REACTIONS (1)
  - PANCREATITIS ACUTE [None]
